FAERS Safety Report 8914436 (Version 1)
Quarter: 2012Q4

REPORT INFORMATION
  Report Type: 
  Country: BR (occurrence: BR)
  Receive Date: 20121119
  Receipt Date: 20121119
  Transmission Date: 20130627
  Serious: Yes (Other)
  Sender: FDA-Public Use
  Company Number: BR-PFIZER INC-2012284087

PATIENT
  Age: 64 Year
  Sex: Female
  Weight: 100 kg

DRUGS (1)
  1. CELEBRA [Suspect]
     Dosage: 200 mg, 1x/day
     Dates: start: 20120713

REACTIONS (1)
  - Surgery [Unknown]
